FAERS Safety Report 7785289-3 (Version None)
Quarter: 2011Q3

REPORT INFORMATION
  Report Type: 
  Country: None (occurrence: None)
  Receive Date: 20110929
  Receipt Date: 20110926
  Transmission Date: 20111222
  Serious: No
  Sender: FDA-Public Use
  Company Number: US-PFIZER INC-2011228670

PATIENT
  Sex: Male

DRUGS (3)
  1. GENOTROPIN [Suspect]
     Dosage: 2.8 MG, 1X/DAY
     Route: 058
  2. MULTI-VITAMINS [Concomitant]
     Dosage: UNK
  3. TYLENOL-500 [Concomitant]
     Dosage: 500 MG, UNK

REACTIONS (2)
  - HEADACHE [None]
  - PAIN [None]
